FAERS Safety Report 4307548-9 (Version None)
Quarter: 2004Q1

REPORT INFORMATION
  Report Type: 
  Country: None (occurrence: None)
  Receive Date: 20040226
  Receipt Date: 20040216
  Transmission Date: 20041129
  Serious: Yes (Other)
  Sender: FDA-Public Use
  Company Number: 2004010553

PATIENT
  Age: 75 Year
  Sex: Male
  Weight: 60 kg

DRUGS (3)
  1. ATORVASTATIN CALCIUM [Suspect]
     Indication: HYPERLIPIDAEMIA
     Dosage: 10 MG (DAILY), ORAL
     Dates: start: 20020705, end: 20031017
  2. ATENOLOL [Concomitant]
  3. ACETYLSALICYLIC ACID SRT [Concomitant]

REACTIONS (2)
  - CONDITION AGGRAVATED [None]
  - DUPUYTREN'S CONTRACTURE [None]
